FAERS Safety Report 9299928 (Version 2)
Quarter: 2014Q1

REPORT INFORMATION
  Report Type: Spontaneous
  Country: US (occurrence: US)
  Receive Date: 20130521
  Receipt Date: 20140328
  Transmission Date: 20141002
  Serious: Yes (Other)
  Sender: FDA-Public Use
  Company Number: US-SANOFI-AVENTIS-2013SA050130

PATIENT
  Age: 83 Year
  Sex: Male
  Weight: 185 kg

DRUGS (8)
  1. DIABETA [Suspect]
     Indication: DIABETES MELLITUS
  2. LANTUS SOLOSTAR [Suspect]
     Indication: DIABETES MELLITUS
     Dates: start: 20130513
  3. LANTUS SOLOSTAR [Suspect]
     Indication: DIABETES MELLITUS
     Dosage: DOSE:24 UNIT(S)
     Dates: start: 20130502
  4. SOLOSTAR [Concomitant]
     Indication: DIABETES MELLITUS
     Dates: start: 20130513
  5. SOLOSTAR [Concomitant]
     Indication: DIABETES MELLITUS
     Dates: start: 20130502
  6. METFORMIN [Concomitant]
  7. VICTOZA [Concomitant]
  8. ONGLYZA [Concomitant]

REACTIONS (2)
  - Atrial fibrillation [Unknown]
  - Blood glucose increased [Unknown]
